FAERS Safety Report 16030874 (Version 1)
Quarter: 2019Q1

REPORT INFORMATION
  Report Type: Spontaneous
  Country: US (occurrence: US)
  Receive Date: 20190304
  Receipt Date: 20190304
  Transmission Date: 20190418
  Serious: No
  Sender: FDA-Public Use
  Company Number: US-PFIZER INC-2016359047

PATIENT
  Age: 74 Year
  Sex: Male
  Weight: 116.1 kg

DRUGS (21)
  1. LYRICA [Suspect]
     Active Substance: PREGABALIN
     Indication: DIABETIC NEUROPATHY
     Dosage: 100 MG, 3X/DAY (MORNING, NOON, AND NIGHT)
  2. PREVACID [Concomitant]
     Active Substance: LANSOPRAZOLE
     Dosage: 30 MG, 1X/DAY
  3. ACETAMINOPHEN. [Concomitant]
     Active Substance: ACETAMINOPHEN
     Dosage: 500 MG, UNK (UP TO 6 PER DAY, IN 8 HOUR INCREMENTS)
  4. ALLOPURINOL. [Concomitant]
     Active Substance: ALLOPURINOL
     Dosage: 300 MG, 1X/DAY
  5. LEVEMIR [Concomitant]
     Active Substance: INSULIN DETEMIR
     Dosage: 50 DF, 1X/DAY (AT BEDTIME)
  6. NOVOLOG [Concomitant]
     Active Substance: INSULIN ASPART
     Indication: DIABETES MELLITUS
     Dosage: 18 DF, UNK (100 UNITS/ML. 3 ML PER CARTRIDGE.)
  7. LYRICA [Suspect]
     Active Substance: PREGABALIN
     Indication: PHANTOM PAIN
  8. AVODART [Concomitant]
     Active Substance: DUTASTERIDE
     Dosage: 0.5 MG, DAILY
  9. LEVOTHYROXINE. [Concomitant]
     Active Substance: LEVOTHYROXINE
     Dosage: 75 UG, 1X/DAY
  10. METOPROLOL. [Concomitant]
     Active Substance: METOPROLOL
     Dosage: 25 MG, 2X/DAY
  11. TRESIBA [Concomitant]
     Active Substance: INSULIN DEGLUDEC
     Indication: DIABETES MELLITUS
     Dosage: UNK, 1X/DAY (DOSAGE: UNSURE DOSE, ONE TIME AT BEDTIME)
  12. NOVOLOG [Concomitant]
     Active Substance: INSULIN ASPART
     Dosage: UNK (DOSAGE: DOSE VARIES, ADMINISTERS JUST BEFORE MEALS)
  13. PLAVIX [Concomitant]
     Active Substance: CLOPIDOGREL BISULFATE
     Dosage: 75 MG, 1X/DAY (IN THE MORNING)
  14. DIOVAN [Concomitant]
     Active Substance: VALSARTAN
     Dosage: 80 MG,(MORNING AND EVENING )
  15. FUROSEMIDE. [Concomitant]
     Active Substance: FUROSEMIDE
     Dosage: 20 MG, 2X/DAY
  16. MULTIVITAMIN + MINERAL [Concomitant]
     Active Substance: MINERALS\VITAMINS
     Dosage: UNK, 1X/DAY
  17. STOOL SOFTENER (DOCUSATE) [Concomitant]
     Active Substance: DOCUSATE
     Dosage: 100 MG, UNK (1-4 A DAY IF NEEDED)
  18. VITAMIN D [Concomitant]
     Active Substance: CHOLECALCIFEROL
     Dosage: 50000, WEEKLY (SUNDAY)
  19. LIPITOR [Concomitant]
     Active Substance: ATORVASTATIN CALCIUM
     Dosage: 20 MG (AT BEDTIME)
  20. BABY ASPIRIN [Concomitant]
     Active Substance: ASPIRIN
     Dosage: UNK, DAILY
  21. TUSSIONEX PENNKINETIC [Concomitant]
     Active Substance: CHLORPHENIRAMINE\HYDROCODONE
     Indication: COUGH
     Dosage: UNK, AS NEEDED (1 TSP) (BEDTIME)

REACTIONS (2)
  - Mobility decreased [Unknown]
  - Visual impairment [Unknown]
